FAERS Safety Report 13684764 (Version 2)
Quarter: 2018Q2

REPORT INFORMATION
  Report Type: Spontaneous
  Country: US (occurrence: US)
  Receive Date: 20170623
  Receipt Date: 20180622
  Transmission Date: 20180711
  Serious: No
  Sender: FDA-Public Use
  Company Number: US-ASTELLAS-2017US020917

PATIENT
  Sex: Female

DRUGS (1)
  1. VESICARE [Suspect]
     Active Substance: SOLIFENACIN SUCCINATE
     Indication: INCONTINENCE
     Dosage: 10 MG, ONCE DAILY (BY MOUTH AT BEDTIME)
     Route: 048
     Dates: start: 20170102

REACTIONS (2)
  - Product colour issue [Unknown]
  - Drug ineffective [Unknown]
